FAERS Safety Report 8389276-6 (Version None)
Quarter: 2012Q2

REPORT INFORMATION
  Report Type: 
  Country: None (occurrence: None)
  Receive Date: 20120528
  Receipt Date: 20120523
  Transmission Date: 20120825
  Serious: Yes (Other)
  Sender: FDA-Public Use
  Company Number: JP-BRISTOL-MYERS SQUIBB COMPANY-16389439

PATIENT
  Age: 59 Year
  Sex: Female
  Weight: 82 kg

DRUGS (8)
  1. AMLODIPINE [Concomitant]
     Indication: HYPERTENSION
     Route: 048
     Dates: start: 20000101
  2. JUVELA N [Concomitant]
     Indication: RHEUMATOID ARTHRITIS
     Route: 048
     Dates: start: 20000101
  3. ORENCIA [Suspect]
     Indication: RHEUMATOID ARTHRITIS
     Route: 041
     Dates: start: 20111205, end: 20120106
  4. APLACE [Concomitant]
     Indication: GASTRIC ULCER
     Route: 048
     Dates: start: 20000101
  5. PREDNISOLONE [Concomitant]
     Dosage: 1DF= 5MG TAB, 1 MG TAB
     Route: 048
     Dates: start: 20030101
  6. INDAPAMIDE [Concomitant]
     Indication: HYPERTENSION
     Route: 048
     Dates: start: 20000101
  7. BONOTEO [Concomitant]
     Indication: OSTEOPOROSIS
     Route: 048
     Dates: start: 20010101
  8. DORNER [Concomitant]
     Indication: RHEUMATOID ARTHRITIS
     Route: 048
     Dates: start: 20000101

REACTIONS (1)
  - ERYTHEMA ELEVATUM DIUTINUM [None]
